FAERS Safety Report 9056175 (Version 1)
Quarter: 2013Q1

REPORT INFORMATION
  Report Type: Spontaneous
  Country: US (occurrence: US)
  Receive Date: 20130205
  Receipt Date: 20130205
  Transmission Date: 20140127
  Serious: Yes (Other)
  Sender: FDA-Public Use
  Company Number: US-PFIZER INC-2013043184

PATIENT
  Age: 83 Year
  Sex: Female
  Weight: 82.54 kg

DRUGS (7)
  1. REVATIO [Suspect]
     Dosage: UNK, 3X/DAY
     Route: 048
     Dates: start: 200908
  2. SPIRONOLACTONE [Concomitant]
     Dosage: UNK
  3. FUROSEMIDE [Concomitant]
     Dosage: UNK
  4. METOPROLOL [Concomitant]
     Dosage: UNK
  5. POTASSIUM [Concomitant]
     Dosage: UNK
  6. AMLODIPINE [Concomitant]
     Dosage: UNK
  7. OXYGEN [Concomitant]
     Dosage: UNK

REACTIONS (2)
  - Deafness [Not Recovered/Not Resolved]
  - Fluid retention [Unknown]
